FAERS Safety Report 16207891 (Version 2)
Quarter: 2019Q4

REPORT INFORMATION
  Report Type: Spontaneous
  Country: US (occurrence: US)
  Receive Date: 20190417
  Receipt Date: 20191031
  Transmission Date: 20200122
  Serious: Yes (Other)
  Sender: FDA-Public Use
  Company Number: US-PFIZER INC-2018346057

PATIENT
  Age: 50 Year
  Sex: Male
  Weight: 113.38 kg

DRUGS (16)
  1. PREDNISONE. [Concomitant]
     Active Substance: PREDNISONE
     Indication: NEUROPATHY PERIPHERAL
  2. DILANTIN [Concomitant]
     Active Substance: PHENYTOIN
     Indication: NEURALGIA
  3. PREDNISONE. [Concomitant]
     Active Substance: PREDNISONE
     Indication: STIFF PERSON SYNDROME
  4. TOPAMAX [Concomitant]
     Active Substance: TOPIRAMATE
     Indication: NEURALGIA
  5. TOPAMAX [Concomitant]
     Active Substance: TOPIRAMATE
     Indication: STIFF PERSON SYNDROME
  6. LYRICA [Suspect]
     Active Substance: PREGABALIN
     Indication: GUILLAIN-BARRE SYNDROME
  7. DILANTIN [Concomitant]
     Active Substance: PHENYTOIN
     Indication: GUILLAIN-BARRE SYNDROME
     Dosage: 100 MG, 1X/DAY
  8. TOPAMAX [Concomitant]
     Active Substance: TOPIRAMATE
     Indication: GUILLAIN-BARRE SYNDROME
     Dosage: 200 MG, 2X/DAY
     Route: 048
  9. LYRICA [Suspect]
     Active Substance: PREGABALIN
     Indication: NEURALGIA
  10. PREDNISONE. [Concomitant]
     Active Substance: PREDNISONE
     Indication: GUILLAIN-BARRE SYNDROME
     Dosage: 10 MG, 1X/DAY
     Route: 048
  11. DILANTIN [Concomitant]
     Active Substance: PHENYTOIN
     Indication: NEUROPATHY PERIPHERAL
  12. LYRICA [Suspect]
     Active Substance: PREGABALIN
     Indication: NEUROPATHY PERIPHERAL
     Dosage: 200 MG, 2X/DAY
     Route: 048
  13. LYRICA [Suspect]
     Active Substance: PREGABALIN
     Indication: STIFF PERSON SYNDROME
  14. DILANTIN [Concomitant]
     Active Substance: PHENYTOIN
     Indication: STIFF PERSON SYNDROME
  15. TOPAMAX [Concomitant]
     Active Substance: TOPIRAMATE
     Indication: NEUROPATHY PERIPHERAL
  16. PREDNISONE. [Concomitant]
     Active Substance: PREDNISONE
     Indication: NEURALGIA

REACTIONS (1)
  - Drug dependence [Unknown]
